FAERS Safety Report 4550742-2 (Version None)
Quarter: 2004Q4

REPORT INFORMATION
  Report Type: 
  Country: None (occurrence: None)
  Receive Date: 20041217
  Receipt Date: 20050923
  Transmission Date: 20050328
  Serious: No
  Sender: FDA-Public Use
  Company Number: 2004-BP-08677BP

PATIENT
  Age: 88 Year
  Sex: Female
  Weight: 51.36 kg

DRUGS (1)
  1. SPIRIVA [Suspect]
     Indication: CHRONIC OBSTRUCTIVE AIRWAYS DISEASE
     Dosage: 18 MCG (18 MCG) IH
     Route: 055
     Dates: start: 20040520, end: 20040523

REACTIONS (2)
  - DRUG INTERACTION [None]
  - ERYTHEMA [None]
